FAERS Safety Report 8202407-3 (Version None)
Quarter: 2012Q1

REPORT INFORMATION
  Report Type: 
  Country: None (occurrence: None)
  Receive Date: 20120312
  Receipt Date: 20110831
  Transmission Date: 20120608
  Serious: No
  Sender: FDA-Public Use
  Company Number: US-ABBOTT-11P-163-0731194-00

PATIENT
  Sex: Female
  Weight: 77.18 kg

DRUGS (2)
  1. DEPAKOTE [Suspect]
     Indication: CONVULSION
     Dates: start: 19800101
  2. PROZAC [Concomitant]
     Indication: DEPRESSION

REACTIONS (1)
  - WEIGHT INCREASED [None]
